FAERS Safety Report 4636692-1 (Version None)
Quarter: 2005Q2

REPORT INFORMATION
  Report Type: 
  Country: None (occurrence: None)
  Receive Date: 20050414
  Receipt Date: 20050330
  Transmission Date: 20051028
  Serious: Yes (Other)
  Sender: FDA-Public Use
  Company Number: 213728

PATIENT
  Sex: Female

DRUGS (1)
  1. HERCEPTIN [Suspect]
     Indication: NEOPLASM MALIGNANT
     Dosage: 2 MG/KG, Q3W, INTRAVENOUS
     Route: 042

REACTIONS (1)
  - VITREOUS DETACHMENT [None]
